FAERS Safety Report 6149489-0 (Version None)
Quarter: 2009Q2

REPORT INFORMATION
  Report Type: 
  Country: None (occurrence: None)
  Receive Date: 20090409
  Receipt Date: 20090401
  Transmission Date: 20091009
  Serious: Yes (Hospitalization, Other)
  Sender: FDA-Public Use
  Company Number: DE-ROCHE-593814

PATIENT
  Sex: Female
  Weight: 52 kg

DRUGS (3)
  1. PEGASYS [Suspect]
     Indication: HEPATITIS C
     Route: 058
     Dates: start: 20071204, end: 20081209
  2. RIBAVIRIN [Suspect]
     Indication: HEPATITIS C
     Route: 048
     Dates: start: 20071204, end: 20080502
  3. RIBAVIRIN [Suspect]
     Route: 048
     Dates: start: 20080503, end: 20081209

REACTIONS (4)
  - AUTOIMMUNE THYROIDITIS [None]
  - PHARYNGITIS [None]
  - UVEITIS [None]
  - VIRAL LOAD INCREASED [None]
